FAERS Safety Report 9514005 (Version 1)
Quarter: 2013Q3

REPORT INFORMATION
  Report Type: Spontaneous
  Country: US (occurrence: US)
  Receive Date: 20130910
  Receipt Date: 20130910
  Transmission Date: 20140515
  Serious: No
  Sender: FDA-Public Use
  Company Number: US-UPSHER-SMITH LABORATORIES, INC.-12002494

PATIENT
  Age: 53 Year
  Sex: Female

DRUGS (4)
  1. OXYBUTYNIN CHLORIDE [Suspect]
     Indication: URINARY RETENTION
     Dosage: 10 MG, QD
     Route: 048
     Dates: start: 20120925, end: 201209
  2. OXYBUTYNIN CHLORIDE [Suspect]
     Dosage: 20 MG, QD
     Route: 048
     Dates: start: 201209
  3. VICODIN [Concomitant]
     Dosage: UNK
  4. UNSPECIFIED MUSCLE RELAXERS [Concomitant]
     Dosage: UNK

REACTIONS (3)
  - Drug ineffective [Not Recovered/Not Resolved]
  - Urinary tract pain [Not Recovered/Not Resolved]
  - Tinnitus [Not Recovered/Not Resolved]
